FAERS Safety Report 21023569 (Version 1)
Quarter: 2022Q2

REPORT INFORMATION
  Report Type: Spontaneous
  Country: ES (occurrence: ES)
  Receive Date: 20220629
  Receipt Date: 20220629
  Transmission Date: 20220720
  Serious: Yes (Death, Other)
  Sender: FDA-Public Use
  Company Number: ES-SA-SAC20220627000171

PATIENT
  Age: 47 Year
  Sex: Female
  Weight: 127 kg

DRUGS (13)
  1. LEFLUNOMIDE [Suspect]
     Active Substance: LEFLUNOMIDE
  2. ADALIMUMAB [Suspect]
     Active Substance: ADALIMUMAB
     Route: 058
  3. ETORICOXIB [Suspect]
     Active Substance: ETORICOXIB
     Dosage: 1 TABLET AT DINNER(TIME)
     Route: 048
  4. METHOTREXATE [Suspect]
     Active Substance: METHOTREXATE
     Indication: Rheumatoid arthritis
     Dosage: 2,5 MG: 0-2-2, SUNDAY
  5. FOLIC ACID [Concomitant]
     Active Substance: FOLIC ACID
  6. ETANERCEPT [Concomitant]
     Active Substance: ETANERCEPT
  7. PREDNISONE [Concomitant]
     Active Substance: PREDNISONE
  8. GABAPENTIN [Concomitant]
     Active Substance: GABAPENTIN
  9. OMEPRAZOLE [Concomitant]
     Active Substance: OMEPRAZOLE
  10. ACETAMINOPHEN [Concomitant]
     Active Substance: ACETAMINOPHEN
  11. URBASON DEPOT [Concomitant]
  12. NOLOTIL COMPOSITUM [Concomitant]
  13. FERROUS GLUCONATE [Concomitant]
     Active Substance: FERROUS GLUCONATE

REACTIONS (2)
  - Cardio-respiratory arrest [Fatal]
  - Sudden death [Fatal]

NARRATIVE: CASE EVENT DATE: 20211024
